FAERS Safety Report 23767155 (Version 1)
Quarter: 2024Q2

REPORT INFORMATION
  Report Type: Spontaneous
  Country: US (occurrence: US)
  Receive Date: 20240422
  Receipt Date: 20240422
  Transmission Date: 20240716
  Serious: Yes (Other)
  Sender: FDA-Public Use
  Company Number: US-ALEMBIC PHARMACUETICALS LIMITED-2024SCAL000464

PATIENT

DRUGS (1)
  1. METOPROLOL TARTRATE [Suspect]
     Active Substance: METOPROLOL TARTRATE
     Indication: Chronic kidney disease
     Dosage: UNK
     Route: 065

REACTIONS (8)
  - BRASH syndrome [Unknown]
  - Syncope [Unknown]
  - Bradycardia [Unknown]
  - Hyperkalaemia [Unknown]
  - Acute kidney injury [Recovered/Resolved]
  - Atrioventricular block complete [Unknown]
  - Blood pressure decreased [Unknown]
  - Hypophagia [Unknown]
